FAERS Safety Report 8361308-0 (Version None)
Quarter: 2012Q2

REPORT INFORMATION
  Report Type: 
  Country: None (occurrence: None)
  Receive Date: 20120515
  Receipt Date: 20120509
  Transmission Date: 20120825
  Serious: Yes (Other)
  Sender: FDA-Public Use
  Company Number: FR-MERCK-0903FRA00006

PATIENT
  Age: 19 Year
  Sex: Male

DRUGS (9)
  1. AMPHOTERICIN B AND CHOLESTEROL AND DISTEAROYLPHOSPHATIDYLGLYCEROL AND [Suspect]
     Indication: APLASIA
     Route: 042
     Dates: start: 20081120
  2. PRIMAXIN [Suspect]
     Indication: APLASIA
     Route: 042
     Dates: start: 20081111
  3. VANCOMYCIN [Suspect]
     Indication: APLASIA
     Route: 042
     Dates: start: 20081111
  4. VINCRISTINE SULFATE [Concomitant]
     Indication: ACUTE LYMPHOCYTIC LEUKAEMIA
     Route: 065
  5. METHYLPREDNISOLONE ACETATE [Concomitant]
     Indication: ACUTE LYMPHOCYTIC LEUKAEMIA
     Route: 065
  6. CYTARABINE [Concomitant]
     Indication: ACUTE LYMPHOCYTIC LEUKAEMIA
     Route: 051
  7. METHOTREXATE [Concomitant]
     Indication: ACUTE LYMPHOCYTIC LEUKAEMIA
     Route: 065
  8. DAUNORUBICIN HYDROCHLORIDE [Suspect]
     Indication: ACUTE LYMPHOCYTIC LEUKAEMIA
     Route: 042
     Dates: start: 20081028, end: 20081111
  9. CYCLOPHOSPHAMIDE [Concomitant]
     Indication: ACUTE LYMPHOCYTIC LEUKAEMIA
     Route: 051

REACTIONS (2)
  - FACE OEDEMA [None]
  - DERMATITIS EXFOLIATIVE [None]
